FAERS Safety Report 8149645-6 (Version None)
Quarter: 2012Q1

REPORT INFORMATION
  Report Type: 
  Country: None (occurrence: None)
  Receive Date: 20120218
  Receipt Date: 20111111
  Transmission Date: 20120608
  Serious: No
  Sender: FDA-Public Use
  Company Number: US-ALLERGAN-1114936US

PATIENT
  Sex: Female

DRUGS (1)
  1. BOTULINUM TOXIN TYPE A [Suspect]
     Indication: TORTICOLLIS
     Dosage: UNK
     Dates: start: 20111028, end: 20111028

REACTIONS (6)
  - TREMOR [None]
  - DIZZINESS [None]
  - NAUSEA [None]
  - EYELID PTOSIS [None]
  - PAIN [None]
  - BACK PAIN [None]
